FAERS Safety Report 7404386-5 (Version None)
Quarter: 2011Q2

REPORT INFORMATION
  Report Type: 
  Country: None (occurrence: None)
  Receive Date: 20110408
  Receipt Date: 20110325
  Transmission Date: 20111010
  Serious: Yes (Hospitalization)
  Sender: FDA-Public Use
  Company Number: JP-GENENTECH-316140

PATIENT
  Sex: Female
  Weight: 74 kg

DRUGS (15)
  1. HOKUNALIN [Concomitant]
     Indication: PRODUCT USED FOR UNKNOWN INDICATION
     Dosage: 2 MG, UNK
     Dates: start: 20090708
  2. XOLAIR [Suspect]
     Indication: ASTHMA
     Dosage: 375 MG, Q2W
     Route: 058
     Dates: start: 20090928
  3. XOLAIR [Suspect]
     Dosage: UNK
     Dates: start: 20091225
  4. XOLAIR [Suspect]
     Dosage: UNK
     Dates: start: 20100115
  5. NEOPHYLLIN [Concomitant]
     Indication: PRODUCT USED FOR UNKNOWN INDICATION
     Dosage: UNK
     Dates: start: 20091023, end: 20100108
  6. XOLAIR [Suspect]
     Dosage: UNK
     Dates: start: 20091009
  7. QVAR 40 [Concomitant]
     Indication: PRODUCT USED FOR UNKNOWN INDICATION
     Dosage: 600 A?G, UNK
     Dates: start: 20090708
  8. XOLAIR [Suspect]
     Dosage: UNK
     Dates: start: 20091211
  9. SOLU-MEDROL [Concomitant]
     Indication: PRODUCT USED FOR UNKNOWN INDICATION
     Dosage: UNK
     Dates: start: 20091021, end: 20091127
  10. XOLAIR [Suspect]
     Dosage: UNK
     Dates: start: 20091113
  11. ONON [Concomitant]
     Indication: PRODUCT USED FOR UNKNOWN INDICATION
     Dosage: 450 MG, UNK
     Dates: start: 20090708
  12. THEO-DUR [Concomitant]
     Indication: PRODUCT USED FOR UNKNOWN INDICATION
     Dosage: 200 MG, UNK
     Dates: start: 20090708
  13. PREDONINE [Concomitant]
     Indication: PRODUCT USED FOR UNKNOWN INDICATION
     Dosage: UNK
     Dates: start: 20100109
  14. PREDONINE [Concomitant]
     Dosage: UNK
     Dates: end: 20100114
  15. MEPTIN [Concomitant]
     Indication: PRODUCT USED FOR UNKNOWN INDICATION
     Dosage: UNK
     Dates: start: 20090708

REACTIONS (1)
  - ASTHMA [None]
